FAERS Safety Report 7404918-7 (Version None)
Quarter: 2011Q2

REPORT INFORMATION
  Report Type: 
  Country: None (occurrence: None)
  Receive Date: 20110411
  Receipt Date: 20101102
  Transmission Date: 20111010
  Serious: Yes (Hospitalization, Other)
  Sender: FDA-Public Use
  Company Number: US-BAYER-201022776NA

PATIENT
  Age: 27 Year
  Sex: Female
  Weight: 80 kg

DRUGS (20)
  1. ATIVAN [Concomitant]
  2. METROGEL [Concomitant]
     Dosage: UNK
     Dates: start: 20090801
  3. CIPROFLOXACIN [Concomitant]
     Dosage: UNK
     Dates: start: 20091201
  4. YAZ [Suspect]
     Indication: PREMENSTRUAL SYNDROME
     Dosage: UNK
     Dates: start: 20070201, end: 20091201
  5. VICODIN [Concomitant]
     Dosage: UNK
     Dates: start: 20090914
  6. YASMIN [Suspect]
     Indication: CONTRACEPTION
     Dosage: UNK
     Dates: start: 20050101, end: 20070101
  7. LORAZEPAM [Concomitant]
     Indication: ANXIETY
     Dosage: UNK
     Dates: start: 20070701
  8. PHENTERMINE [Concomitant]
     Dosage: UNK
     Dates: start: 20081220, end: 20100501
  9. YAZ [Suspect]
     Indication: CONTRACEPTION
     Dates: start: 20030101
  10. YASMIN [Suspect]
     Indication: PREMENSTRUAL SYNDROME
  11. VANDAZOLE [Concomitant]
     Dosage: UNK
     Dates: start: 20090901
  12. MINOCYCLINE [Concomitant]
     Indication: ROSACEA
     Dosage: UNK
     Dates: start: 20080901
  13. AMOXICILLIN [Concomitant]
     Indication: INFECTION
     Dosage: UNK
     Dates: start: 20091202, end: 20091212
  14. SULFAMETHOXAZOLE [Concomitant]
     Dosage: UNK
     Dates: start: 20091201
  15. PROZAC [Concomitant]
     Indication: DEPRESSION
     Dosage: UNK
     Dates: start: 20060201, end: 20090801
  16. VENTOLIN [Concomitant]
     Dosage: UNK
     Dates: start: 20090101
  17. SEPTRA [Concomitant]
     Indication: URINARY TRACT INFECTION
     Dosage: UNK
     Dates: start: 20091230
  18. PHENTERMINE [Concomitant]
     Indication: WEIGHT DECREASED
     Dosage: UNK
     Dates: start: 20091120, end: 20091130
  19. CIPROFLOXACIN [Concomitant]
     Dosage: UNK
     Dates: start: 20091101
  20. WELLBUTRIN [Concomitant]
     Indication: DEPRESSION
     Dosage: UNK
     Dates: start: 20070701

REACTIONS (9)
  - OEDEMA PERIPHERAL [None]
  - CHEST DISCOMFORT [None]
  - POST THROMBOTIC SYNDROME [None]
  - DYSPNOEA [None]
  - DEEP VEIN THROMBOSIS [None]
  - ARTHRALGIA [None]
  - VENOUS INSUFFICIENCY [None]
  - PAIN IN EXTREMITY [None]
  - MENTAL DISORDER [None]
